FAERS Safety Report 8232401-8 (Version None)
Quarter: 2012Q1

REPORT INFORMATION
  Report Type: 
  Country: None (occurrence: None)
  Receive Date: 20120323
  Receipt Date: 20120322
  Transmission Date: 20120608
  Serious: Yes (Other)
  Sender: FDA-Public Use
  Company Number: DE-GLAXOSMITHKLINE-D0074679A

PATIENT
  Sex: Male
  Weight: 75 kg

DRUGS (1)
  1. FLUTICASONE FUROATE [Suspect]
     Indication: VASOMOTOR RHINITIS
     Dosage: 2PUFF SINGLE DOSE
     Route: 045

REACTIONS (3)
  - DYSPNOEA [None]
  - OROPHARYNGEAL SWELLING [None]
  - SWELLING FACE [None]
